FAERS Safety Report 13375015 (Version 1)
Quarter: 2017Q1

REPORT INFORMATION
  Report Type: Spontaneous
  Country: AE (occurrence: AE)
  Receive Date: 20170327
  Receipt Date: 20170327
  Transmission Date: 20170429
  Serious: Yes (Hospitalization, Other)
  Sender: FDA-Public Use
  Company Number: AE-PFIZER INC-2017077219

PATIENT
  Age: 28 Year
  Sex: Female
  Weight: 70.5 kg

DRUGS (5)
  1. LINCOCIN [Suspect]
     Active Substance: LINCOMYCIN
     Indication: TONSILLITIS
     Dosage: 600 MG, UNK
     Route: 042
     Dates: start: 20170215, end: 20170215
  2. CLAMYCIN [Concomitant]
     Indication: TONSILLITIS
     Dosage: 500 MG, 2X/DAY
     Route: 048
     Dates: start: 20170214, end: 20170216
  3. PERFALGAN [Concomitant]
     Active Substance: ACETAMINOPHEN
     Indication: TONSILLITIS
     Dosage: 1 G, 3X/DAY
     Route: 042
     Dates: start: 20170214, end: 20170216
  4. CEFTRIAXONE. [Concomitant]
     Active Substance: CEFTRIAXONE
     Indication: TONSILLITIS
     Dosage: 1 G, 2X/DAY
     Dates: start: 20170214, end: 20170216
  5. CLARA [Concomitant]
     Active Substance: PSYLLIUM HUSK
     Indication: TONSILLITIS
     Dosage: 10 MG, 1X/DAY AT HS
     Route: 048
     Dates: start: 20170214, end: 20170216

REACTIONS (7)
  - Hypersensitivity [Unknown]
  - Haematuria [Unknown]
  - Skin lesion [Unknown]
  - Pruritus [Unknown]
  - Necrosis [Unknown]
  - Erythema multiforme [Unknown]
  - Rash [Unknown]

NARRATIVE: CASE EVENT DATE: 201702
